FAERS Safety Report 5356051-6 (Version None)
Quarter: 2007Q2

REPORT INFORMATION
  Report Type: 
  Country: None (occurrence: None)
  Receive Date: 20070529
  Receipt Date: 20070301
  Transmission Date: 20071010
  Serious: Yes (Other)
  Sender: FDA-Public Use
  Company Number: 2006144604

PATIENT
  Age: 36 Year
  Sex: Female
  Weight: 78 kg

DRUGS (10)
  1. EXUBERA [Suspect]
     Indication: DIABETES MELLITUS
     Dosage: 12 MG (4 MG,3 IN 1 D)
     Dates: start: 20060906
  2. EXUBERA [Suspect]
  3. DARVOCET [Concomitant]
  4. NORVASC [Concomitant]
  5. LIPITOR [Concomitant]
  6. NEXIUM [Concomitant]
  7. ORAL CONTRACEPTIVE NOS                (ORAL CONTRACEPTIVE NOS) [Concomitant]
  8. AMBIEN [Concomitant]
  9. CELEBREX [Concomitant]
  10. DRUG, UNSPECIFIED (DRUG, UNSPECIFIED) [Concomitant]

REACTIONS (5)
  - ASTHMA [None]
  - BLOOD GLUCOSE DECREASED [None]
  - BURNING SENSATION [None]
  - DYSPNOEA [None]
  - RESPIRATORY TRACT INFECTION [None]
